FAERS Safety Report 10611526 (Version 1)
Quarter: 2014Q4

REPORT INFORMATION
  Report Type: Spontaneous
  Country: US (occurrence: US)
  Receive Date: 20141126
  Receipt Date: 20141126
  Transmission Date: 20150529
  Serious: No
  Sender: FDA-Public Use
  Company Number: US-GLAXOSMITHKLINE-A1080194A

PATIENT

DRUGS (3)
  1. BENLYSTA [Suspect]
     Active Substance: BELIMUMAB
  2. FLONASE [Suspect]
     Active Substance: FLUTICASONE PROPIONATE
  3. VERAMYST [Suspect]
     Active Substance: FLUTICASONE FUROATE

REACTIONS (6)
  - Throat irritation [Unknown]
  - Sneezing [Unknown]
  - Drug ineffective [Unknown]
  - Cough [Unknown]
  - Ill-defined disorder [Unknown]
  - Dysphonia [Unknown]
